FAERS Safety Report 8250580-3 (Version None)
Quarter: 2012Q2

REPORT INFORMATION
  Report Type: 
  Country: None (occurrence: None)
  Receive Date: 20120402
  Receipt Date: 20120402
  Transmission Date: 20120825
  Serious: Yes (Death)
  Sender: FDA-Public Use
  Company Number: None

PATIENT
  Age: 40 Year
  Sex: Male
  Weight: 68.038 kg

DRUGS (1)
  1. TUBERSOL [Suspect]

REACTIONS (4)
  - EXCORIATION [None]
  - LACERATION [None]
  - STREPTOCOCCAL INFECTION [None]
  - SOFT TISSUE NECROSIS [None]
